FAERS Safety Report 14176395 (Version 1)
Quarter: 2017Q4

REPORT INFORMATION
  Report Type: Report from Study
  Country: CO (occurrence: CO)
  Receive Date: 20171109
  Receipt Date: 20171109
  Transmission Date: 20180321
  Serious: Yes (Hospitalization)
  Sender: FDA-Public Use
  Company Number: CO-IPSEN BIOPHARMACEUTICALS, INC.-2017-13324

PATIENT
  Age: 80 Year
  Sex: Male

DRUGS (5)
  1. LOSARTAN. [Concomitant]
     Active Substance: LOSARTAN
     Indication: HYPERTENSION
  2. METFORMIN [Concomitant]
     Active Substance: METFORMIN HYDROCHLORIDE
     Indication: DIABETES MELLITUS
  3. CLONIDINE. [Concomitant]
     Active Substance: CLONIDINE
     Indication: HYPERTENSION
  4. ATORVASTATIN [Concomitant]
     Active Substance: ATORVASTATIN
     Indication: DISEASE RISK FACTOR
  5. SOMATULINE 90MG [Suspect]
     Active Substance: LANREOTIDE ACETATE
     Indication: ACROMEGALY
     Dosage: 90 MG
     Route: 058
     Dates: start: 20100209

REACTIONS (3)
  - Cerebrovascular accident [Recovering/Resolving]
  - Hyperglycaemia [Recovering/Resolving]
  - Hypertension [Recovering/Resolving]

NARRATIVE: CASE EVENT DATE: 201710
